FAERS Safety Report 16055289 (Version 1)
Quarter: 2019Q1

REPORT INFORMATION
  Report Type: Spontaneous
  Country: US (occurrence: US)
  Receive Date: 20190311
  Receipt Date: 20190311
  Transmission Date: 20190418
  Serious: Yes (Other)
  Sender: FDA-Public Use
  Company Number: US-009507513-1903USA002072

PATIENT
  Sex: Female
  Weight: 68.04 kg

DRUGS (1)
  1. TEMODAR [Suspect]
     Active Substance: TEMOZOLOMIDE

REACTIONS (3)
  - Anaphylactic shock [Unknown]
  - Dyspnoea [Unknown]
  - Swelling [Unknown]
